FAERS Safety Report 10179552 (Version 2)
Quarter: 2014Q2

REPORT INFORMATION
  Report Type: Spontaneous
  Country: CA (occurrence: CA)
  Receive Date: 20140519
  Receipt Date: 20140519
  Transmission Date: 20141212
  Serious: Yes (Death, Other)
  Sender: FDA-Public Use
  Company Number: CA-BAXTER-2014BAX023406

PATIENT
  Age: 65 Year
  Sex: Female

DRUGS (3)
  1. DIANEAL PD4 SOLUTION WITH 1.5% DEXTROSE AND 2.5 MEQ/L CALCIUM [Suspect]
     Indication: RENAL FAILURE
     Dosage: 1 BAG
     Route: 033
     Dates: start: 2010, end: 20140313
  2. DIANEAL PD4 SOLUTION WITH 2.5% DEXTROSE AND 2.5 MEQ/L CALCIUM [Suspect]
     Indication: RENAL FAILURE
     Dosage: 1 BAG
     Route: 033
     Dates: start: 2010, end: 20140313
  3. VANCOMYCIN [Suspect]
     Indication: DEVICE RELATED INFECTION
     Route: 042
     Dates: start: 201402, end: 201402

REACTIONS (4)
  - Therapy cessation [Fatal]
  - Renal failure [Unknown]
  - Peritoneal dialysis complication [Unknown]
  - Device related infection [Recovered/Resolved]
